FAERS Safety Report 9137765 (Version 2)
Quarter: 2013Q1

REPORT INFORMATION
  Report Type: Report from Study
  Country: CA (occurrence: CA)
  Receive Date: 20130304
  Receipt Date: 20130322
  Transmission Date: 20140127
  Serious: Yes (Hospitalization)
  Sender: FDA-Public Use
  Company Number: CA-ABBOTT-13P-028-1055560-00

PATIENT
  Sex: Female
  Weight: 56 kg

DRUGS (3)
  1. HUMIRA [Suspect]
     Indication: CROHN^S DISEASE
     Route: 058
     Dates: start: 20130130
  2. HUMIRA [Suspect]
     Route: 058
     Dates: end: 20130221
  3. IMURAN [Concomitant]

REACTIONS (1)
  - Hospitalisation [Unknown]
